FAERS Safety Report 14544999 (Version 2)
Quarter: 2021Q4

REPORT INFORMATION
  Report Type: Report from Study
  Country: FR (occurrence: FR)
  Receive Date: 20180217
  Receipt Date: 20211020
  Transmission Date: 20220303
  Serious: Yes (Hospitalization, Other)
  Sender: FDA-Public Use
  Company Number: FR-SHIRE-FR201720190

PATIENT
  Sex: Male

DRUGS (14)
  1. METHOTREXATE [Suspect]
     Active Substance: METHOTREXATE
     Indication: Acute lymphocytic leukaemia
     Dosage: 12 MILLIGRAM, UNK
     Route: 037
  2. METHOTREXATE [Suspect]
     Active Substance: METHOTREXATE
     Dosage: 12 MILLIGRAM, UNK
     Route: 037
     Dates: start: 20170605, end: 20170704
  3. METHOTREXATE [Suspect]
     Active Substance: METHOTREXATE
     Dosage: 175 MILLIGRAM, UNK
     Dates: start: 20170611, end: 20170717
  4. PEGASPARGASE [Suspect]
     Active Substance: PEGASPARGASE
     Indication: Acute lymphocytic leukaemia
     Dosage: 1700 INTERNATIONAL UNIT, UNK
     Route: 042
  5. PEGASPARGASE [Suspect]
     Active Substance: PEGASPARGASE
     Dosage: 1780 INTERNATIONAL UNIT, UNK
     Route: 042
     Dates: start: 20170611, end: 20170710
  6. CYCLOPHOSPHAMIDE [Suspect]
     Active Substance: CYCLOPHOSPHAMIDE
     Indication: Acute lymphocytic leukaemia
     Dosage: 680 MILLIGRAM, UNK
     Route: 042
     Dates: start: 20170718, end: 20170815
  7. MERCAPTOPURINE [Suspect]
     Active Substance: MERCAPTOPURINE
     Indication: Acute lymphocytic leukaemia
     Dosage: 40 MILLIGRAM, UNK
     Route: 048
     Dates: start: 20170718
  8. MERCAPTOPURINE [Suspect]
     Active Substance: MERCAPTOPURINE
     Dosage: 35 MILLIGRAM, UNK
     Route: 048
     Dates: start: 20170604, end: 20170723
  9. HYDROCORTISONE [Suspect]
     Active Substance: HYDROCORTISONE
     Indication: Acute lymphocytic leukaemia
     Dosage: 15 MILLIGRAM, UNK
     Route: 037
     Dates: start: 20170720
  10. VINCRISTINE [Suspect]
     Active Substance: VINCRISTINE
     Indication: Acute lymphocytic leukaemia
     Dosage: 1 MILLIGRAM, UNK
     Route: 042
     Dates: start: 20170801
  11. VINCRISTINE [Suspect]
     Active Substance: VINCRISTINE
     Dosage: 1 MILLIGRAM, UNK
     Route: 042
     Dates: start: 20170604, end: 20170710
  12. CYTARABINE [Suspect]
     Active Substance: CYTARABINE
     Indication: Acute lymphocytic leukaemia
     Dosage: 51 MILLIGRAM, UNK
     Route: 042
     Dates: start: 20170720
  13. CYTARABINE [Suspect]
     Active Substance: CYTARABINE
     Dosage: 30 MILLIGRAM, UNK
     Route: 037
     Dates: start: 20170720
  14. DEXAMETHASONE [Suspect]
     Active Substance: DEXAMETHASONE
     Indication: Acute lymphocytic leukaemia
     Dosage: 425 MILLIGRAM, UNK
     Route: 048
     Dates: start: 20170604, end: 20170707

REACTIONS (1)
  - Febrile bone marrow aplasia [Recovered/Resolved]

NARRATIVE: CASE EVENT DATE: 20170803
